FAERS Safety Report 7144790-6 (Version None)
Quarter: 2010Q4

REPORT INFORMATION
  Report Type: 
  Country: None (occurrence: None)
  Receive Date: 20101112
  Receipt Date: 20100921
  Transmission Date: 20110411
  Serious: Yes (Other)
  Sender: FDA-Public Use
  Company Number: 1000016375

PATIENT
  Age: 50 Year
  Sex: Female

DRUGS (2)
  1. SAVELLA [Suspect]
     Indication: FIBROMYALGIA
     Dosage: 12.5 MG (12.5 MG, 1 IN 1 D), ORAL
     Route: 048
     Dates: start: 20100918, end: 20100918
  2. SAVELLA [Suspect]
     Indication: FIBROMYALGIA
     Dosage: 24 MG (12.5 MG, 2 IN 1 D). ORAL
     Route: 047
     Dates: start: 20100919, end: 20100920

REACTIONS (3)
  - BLOOD PRESSURE INCREASED [None]
  - DIZZINESS [None]
  - HEART RATE INCREASED [None]
